FAERS Safety Report 5284585-1 (Version None)
Quarter: 2007Q1

REPORT INFORMATION
  Report Type: 
  Country: None (occurrence: None)
  Receive Date: 20061215
  Receipt Date: 20051208
  Transmission Date: 20070707
  Serious: Yes (Hospitalization, Other)
  Sender: FDA-Public Use
  Company Number: HQWYE931109DEC05

PATIENT
  Age: 79 Year
  Sex: Male

DRUGS (5)
  1. EFFEXOR XR [Suspect]
     Indication: DEPRESSION
     Dosage: 37.5 MG 2X PER 1 DAY, ORAL
     Route: 048
     Dates: start: 20050101, end: 20051201
  2. REMERON [Concomitant]
  3. PROZAC [Concomitant]
  4. ATENOLOL [Concomitant]
  5. TRICOR [Concomitant]

REACTIONS (2)
  - BRADYCARDIA [None]
  - SYNCOPE [None]
